FAERS Safety Report 4999484-X (Version None)
Quarter: 2006Q2

REPORT INFORMATION
  Report Type: 
  Country: None (occurrence: None)
  Receive Date: 20060509
  Receipt Date: 20060509
  Transmission Date: 20061013
  Serious: Yes (Other)
  Sender: FDA-Public Use
  Company Number: None

PATIENT
  Sex: Female
  Weight: 69.4003 kg

DRUGS (4)
  1. LASIX [Suspect]
     Indication: CHRONIC OBSTRUCTIVE PULMONARY DISEASE
     Dosage: LASIX 20 MG 2 IN AM 1 IN PM PO
     Route: 048
     Dates: end: 20011201
  2. LASIX [Suspect]
     Indication: SARCOIDOSIS
     Dosage: LASIX 20 MG 2 IN AM 1 IN PM PO
     Route: 048
     Dates: end: 20011201
  3. LASIX [Suspect]
     Indication: CHRONIC OBSTRUCTIVE PULMONARY DISEASE
     Dosage: LASIX 20 MG 2 IN AM 1 IN PM PO
     Route: 048
     Dates: start: 20011201
  4. LASIX [Suspect]
     Indication: SARCOIDOSIS
     Dosage: LASIX 20 MG 2 IN AM 1 IN PM PO
     Route: 048
     Dates: start: 20011201

REACTIONS (4)
  - DRUG INEFFECTIVE [None]
  - FLUID RETENTION [None]
  - OEDEMA [None]
  - THERAPEUTIC RESPONSE UNEXPECTED WITH DRUG SUBSTITUTION [None]
